FAERS Safety Report 4988547-0 (Version None)
Quarter: 2006Q2

REPORT INFORMATION
  Report Type: 
  Country: None (occurrence: None)
  Receive Date: 20060502
  Receipt Date: 20041203
  Transmission Date: 20061013
  Serious: Yes (Other)
  Sender: FDA-Public Use
  Company Number: GB-GLAXOSMITHKLINE-B0359436A

PATIENT
  Sex: Female

DRUGS (5)
  1. SEROXAT [Suspect]
     Indication: ANXIETY
     Dosage: 20MG PER DAY
     Route: 065
     Dates: start: 19970101, end: 20040101
  2. DISTALGESIC [Suspect]
     Route: 048
  3. AMOXICILLIN [Suspect]
     Route: 048
  4. ALCOHOL [Suspect]
     Route: 065
  5. MIRTAZAPINE [Concomitant]
     Dosage: 30MG PER DAY
     Dates: start: 20040115

REACTIONS (4)
  - DRUG WITHDRAWAL SYNDROME [None]
  - OVERDOSE [None]
  - SUICIDAL IDEATION [None]
  - SUICIDE ATTEMPT [None]
